FAERS Safety Report 10483347 (Version 1)
Quarter: 2014Q3

REPORT INFORMATION
  Report Type: Spontaneous
  Country: ZA (occurrence: ZA)
  Receive Date: 20140930
  Receipt Date: 20140930
  Transmission Date: 20150326
  Serious: Yes (Other)
  Sender: FDA-Public Use
  Company Number: ZA-RANBAXY-2014R5-86071

PATIENT
  Sex: Female

DRUGS (13)
  1. PEARINDA [Concomitant]
     Indication: HYPERTENSION
     Dosage: AT NIGHT
     Route: 065
  2. PEARINDA [Concomitant]
     Indication: RENAL IMPAIRMENT
  3. ZELIVIRE [Suspect]
     Active Substance: VALACYCLOVIR HYDROCHLORIDE
     Indication: HERPES ZOSTER
     Dosage: 3 DF, DAILY
     Route: 048
     Dates: start: 20140815
  4. AMLOC [Concomitant]
     Active Substance: AMLODIPINE BESYLATE
     Indication: RENAL IMPAIRMENT
  5. SIMVACOR [Concomitant]
     Active Substance: SIMVASTATIN
     Indication: BLOOD CHOLESTEROL INCREASED
     Dosage: UNK
     Route: 065
  6. PEARINDA PLUS [Concomitant]
     Indication: RENAL IMPAIRMENT
  7. AMLOC [Concomitant]
     Active Substance: AMLODIPINE BESYLATE
     Indication: HYPERTENSION
     Dosage: UNK
     Route: 065
  8. ZELIVIRE [Suspect]
     Active Substance: VALACYCLOVIR HYDROCHLORIDE
     Dosage: 1 DF, SINGLE
     Route: 048
  9. ONBREZ BREEZEHALER [Concomitant]
     Indication: EMPHYSEMA
     Dosage: 1 DF, DAILY
     Route: 065
  10. ELTROXIN [Concomitant]
     Active Substance: LEVOTHYROXINE
     Indication: HYPOTHYROIDISM
     Dosage: 1 DF, DAILY
     Route: 065
  11. PEARINDA PLUS [Concomitant]
     Indication: HYPERTENSION
     Dosage: 1 DF, DAILY (AT NIGHT)
     Route: 065
  12. THEOPHYLLIN [Concomitant]
     Active Substance: THEOPHYLLINE
     Indication: EMPHYSEMA
     Dosage: 1 DF, BID
     Route: 065
  13. FORVENT [Concomitant]
     Indication: EMPHYSEMA
     Dosage: 1 DF, DAILY
     Route: 065

REACTIONS (3)
  - Oedema peripheral [Recovering/Resolving]
  - Dyspnoea [Recovering/Resolving]
  - Tenderness [Recovering/Resolving]
